FAERS Safety Report 7793778-0 (Version None)
Quarter: 2011Q4

REPORT INFORMATION
  Report Type: 
  Country: None (occurrence: None)
  Receive Date: 20111003
  Receipt Date: 20110920
  Transmission Date: 20120403
  Serious: Yes (Hospitalization, Other)
  Sender: FDA-Public Use
  Company Number: PHHY2011FR84283

PATIENT
  Sex: Male

DRUGS (4)
  1. HAVLANE [Suspect]
     Dosage: 1 DF, QD
     Dates: end: 20110822
  2. SINTROM [Suspect]
     Indication: ATRIAL FIBRILLATION
     Dosage: 3 MG, QD
     Dates: end: 20110822
  3. VALSARTAN  AND HYDROCHLOROTHIAZIDE [Suspect]
     Dosage: 160 MG OF VALS AND 25 MG OF HYDROCHLORO QD, QD
     Dates: end: 20110822
  4. METFORMIN HCL [Concomitant]

REACTIONS (9)
  - ANAEMIA [None]
  - MALAISE [None]
  - HAEMOTHORAX [None]
  - HAEMATOMA [None]
  - FALL [None]
  - PNEUMOTHORAX [None]
  - MULTIPLE FRACTURES [None]
  - CONVULSION [None]
  - TRAUMATIC LUNG INJURY [None]
